FAERS Safety Report 8609057-5 (Version None)
Quarter: 2012Q3

REPORT INFORMATION
  Report Type: 
  Country: None (occurrence: None)
  Receive Date: 20120821
  Receipt Date: 19920501
  Transmission Date: 20120928
  Serious: Yes (Other)
  Sender: FDA-Public Use
  Company Number: US-ROCHE-1098744

PATIENT
  Age: 50 Year
  Sex: Male

DRUGS (4)
  1. ACTIVASE [Suspect]
     Indication: ACUTE MYOCARDIAL INFARCTION
  2. PROCARDIA [Concomitant]
     Route: 060
  3. NITROGLYCERIN [Concomitant]
     Route: 041
  4. HEPARIN [Concomitant]

REACTIONS (6)
  - SINUS BRADYCARDIA [None]
  - ASTHENIA [None]
  - HYPERTENSION [None]
  - NAUSEA [None]
  - VENTRICULAR EXTRASYSTOLES [None]
  - VENTRICULAR TACHYCARDIA [None]
